FAERS Safety Report 5093340-7 (Version None)
Quarter: 2006Q3

REPORT INFORMATION
  Report Type: 
  Country: None (occurrence: None)
  Receive Date: 20060830
  Receipt Date: 20060704
  Transmission Date: 20061208
  Serious: Yes (Life-Threatening, Disabling, Other)
  Sender: FDA-Public Use
  Company Number: GB-MERCK-0607GBR00013

PATIENT
  Age: 60 Year
  Sex: Female
  Weight: 64 kg

DRUGS (2)
  1. ZETIA [Suspect]
     Indication: HYPERCHOLESTEROLAEMIA
     Route: 048
     Dates: start: 20060619, end: 20060703
  2. ESOMEPRAZOLE MAGNESIUM [Concomitant]
     Indication: HERNIA
     Route: 065
     Dates: start: 20020101

REACTIONS (6)
  - ANAPHYLACTIC SHOCK [None]
  - DIARRHOEA [None]
  - EYE PRURITUS [None]
  - HYPOTENSION [None]
  - NAUSEA [None]
  - PRURITUS [None]
